FAERS Safety Report 5257001-3 (Version None)
Quarter: 2007Q1

REPORT INFORMATION
  Report Type: 
  Country: None (occurrence: None)
  Receive Date: 20070305
  Receipt Date: 20070305
  Transmission Date: 20070707
  Serious: Yes (Life-Threatening, Hospitalization)
  Sender: FDA-Public Use
  Company Number: None

PATIENT
  Sex: Female

DRUGS (7)
  1. PERPHENAZINE [Suspect]
     Indication: SCHIZOPHRENIA
     Dosage: PERPHENAZINE 4 MG DAILY PO
     Route: 048
     Dates: start: 20060101, end: 20060928
  2. COLACE [Concomitant]
  3. DETROL LA [Concomitant]
  4. EVISTA [Concomitant]
  5. ALTACE [Concomitant]
  6. CALCIUM [Concomitant]
  7. THERA-M [Concomitant]

REACTIONS (2)
  - CARDIAC ARREST [None]
  - ELECTROCARDIOGRAM QT PROLONGED [None]
